FAERS Safety Report 6259807 (Version 6)
Quarter: 2015Q3

REPORT INFORMATION
  Report Type: Spontaneous
  Country: US (occurrence: US)
  Receive Date: 20070313
  Receipt Date: 20150703
  Transmission Date: 20151125
  Serious: Yes (Other)
  Sender: FDA-Public Use
  Company Number: US-BAYER-200710767BWH

PATIENT
  Age: 40 Year
  Sex: Female
  Weight: 68 kg

DRUGS (5)
  1. FLONASE [Concomitant]
     Active Substance: FLUTICASONE PROPIONATE
     Dates: start: 200704
  2. AVELOX [Suspect]
     Active Substance: MOXIFLOXACIN HYDROCHLORIDE
     Indication: SINUSITIS
     Route: 048
     Dates: start: 20070305
  3. NEURONTIN [Concomitant]
     Active Substance: GABAPENTIN
  4. PREDNISONE. [Concomitant]
     Active Substance: PREDNISONE
     Dates: start: 200704
  5. AUGMENTIN [Suspect]
     Active Substance: AMOXICILLIN\CLAVULANATE POTASSIUM
     Route: 048
     Dates: start: 20070306

REACTIONS (19)
  - Retinopathy [Unknown]
  - Dizziness [Unknown]
  - Anxiety [Recovering/Resolving]
  - Visual acuity reduced [Unknown]
  - Injury [None]
  - Fear [None]
  - Syncope [Unknown]
  - Hypoaesthesia [None]
  - Burning sensation [None]
  - Anxiety [None]
  - Tendonitis [Recovering/Resolving]
  - Emotional distress [None]
  - Tremor [Recovering/Resolving]
  - Tremor [Recovering/Resolving]
  - Pain [None]
  - Emotional disorder [None]
  - Crying [Recovering/Resolving]
  - Neuropathy peripheral [Unknown]
  - Quality of life decreased [None]

NARRATIVE: CASE EVENT DATE: 200703
